FAERS Safety Report 7754694-3 (Version None)
Quarter: 2011Q3

REPORT INFORMATION
  Report Type: 
  Country: None (occurrence: None)
  Receive Date: 20110915
  Receipt Date: 20110902
  Transmission Date: 20111222
  Serious: Yes (Death)
  Sender: FDA-Public Use
  Company Number: FR-GENENTECH-324205

PATIENT
  Age: 74 Year
  Sex: Male

DRUGS (6)
  1. RANIBIZUMAB [Suspect]
     Indication: MACULAR DEGENERATION
     Dosage: 0.05 ML, UNKNOWN
     Route: 031
     Dates: start: 20070613
  2. RANIBIZUMAB [Suspect]
     Dosage: 0.05 ML, UNKNOWN
     Route: 031
     Dates: start: 20080903
  3. RANIBIZUMAB [Suspect]
     Dosage: 0.05 ML, UNKNOWN
     Route: 031
     Dates: start: 20070903
  4. RANIBIZUMAB [Suspect]
     Dosage: 0.05 ML, 1/MONTH
     Route: 042
     Dates: start: 20090429, end: 20090824
  5. RANIBIZUMAB [Suspect]
     Dosage: 0.05 ML, 1/MONTH
     Route: 031
     Dates: start: 20090826, end: 20100315
  6. RANIBIZUMAB [Suspect]
     Dosage: 0.05 ML, 1/MONTH
     Route: 031
     Dates: start: 20091207, end: 20100407

REACTIONS (1)
  - PROSTATE CANCER [None]
